FAERS Safety Report 6746889-2 (Version None)
Quarter: 2010Q2

REPORT INFORMATION
  Report Type: 
  Country: None (occurrence: None)
  Receive Date: 20100528
  Receipt Date: 20091208
  Transmission Date: 20101027
  Serious: No
  Sender: FDA-Public Use
  Company Number: US-ASTRAZENECA-2010SE01383

PATIENT

DRUGS (2)
  1. PRILOSEC OTC [Suspect]
     Indication: GASTRIC ULCER
     Route: 048
  2. SEDATIVE [Suspect]

REACTIONS (2)
  - PRURITUS [None]
  - RASH ERYTHEMATOUS [None]
